FAERS Safety Report 6848870-1 (Version None)
Quarter: 2010Q3

REPORT INFORMATION
  Report Type: 
  Country: None (occurrence: None)
  Receive Date: 20100716
  Receipt Date: 20071105
  Transmission Date: 20110219
  Serious: No
  Sender: FDA-Public Use
  Company Number: US-PFIZER INC-2007076187

PATIENT
  Sex: Female
  Weight: 59.09 kg

DRUGS (5)
  1. CHANTIX [Suspect]
     Indication: SMOKING CESSATION THERAPY
     Dosage: EVERYDAY
     Route: 048
     Dates: start: 20070501
  2. ESTRATEST [Concomitant]
  3. PREVACID [Concomitant]
  4. TOPROL-XL [Concomitant]
  5. VITAMINS [Concomitant]

REACTIONS (6)
  - DISSOCIATION [None]
  - DRUG DOSE OMISSION [None]
  - FEELING ABNORMAL [None]
  - RESTLESSNESS [None]
  - SLEEP DISORDER [None]
  - STRESS [None]
